FAERS Safety Report 14512476 (Version 1)
Quarter: 2018Q1

REPORT INFORMATION
  Report Type: Spontaneous
  Country: US (occurrence: US)
  Receive Date: 20180209
  Receipt Date: 20180209
  Transmission Date: 20180509
  Serious: No
  Sender: FDA-Public Use
  Company Number: US-ALLERGAN-1715926US

PATIENT
  Sex: Female

DRUGS (6)
  1. CARBAMAZEPINE. [Concomitant]
     Active Substance: CARBAMAZEPINE
     Indication: EPILEPSY
     Dosage: DAILY, 2 AT NIGHT
     Route: 048
  2. PRIMIDONE. [Concomitant]
     Active Substance: PRIMIDONE
     Indication: EPILEPSY
     Dosage: 2, TWICE DAILY
     Route: 048
  3. REFRESH TEARS [Concomitant]
     Active Substance: CARBOXYMETHYLCELLULOSE SODIUM
     Indication: DRY EYE
     Dosage: UNK, BID
     Route: 047
  4. BRONCHAID [Concomitant]
     Indication: ASTHMA
     Dosage: UNK, PRN
     Route: 048
  5. RESTASIS [Suspect]
     Active Substance: CYCLOSPORINE
     Indication: DRY EYE
     Dosage: UNK
     Route: 047
     Dates: end: 2014
  6. BENADRYL [Concomitant]
     Active Substance: DIPHENHYDRAMINE HYDROCHLORIDE
     Indication: HYPERSENSITIVITY

REACTIONS (7)
  - Intentional product misuse [Unknown]
  - Lacrimation increased [Unknown]
  - Visual acuity reduced [Not Recovered/Not Resolved]
  - Amnesia [Unknown]
  - Cataract [Unknown]
  - Corneal erosion [Not Recovered/Not Resolved]
  - Eye pain [Unknown]
